FAERS Safety Report 11176578 (Version 1)
Quarter: 2015Q2

REPORT INFORMATION
  Report Type: Spontaneous
  Country: US (occurrence: None)
  Receive Date: 20150609
  Receipt Date: 20150609
  Transmission Date: 20150821
  Serious: No
  Sender: FDA-Public Use
  Company Number: None

PATIENT
  Age: 80 Year
  Sex: Male

DRUGS (1)
  1. REVLIMID [Suspect]
     Active Substance: LENALIDOMIDE
     Indication: INGROWING NAIL
     Dosage: 10MG DAILY X 21 DAYS PO
     Route: 048
     Dates: start: 20150530, end: 20150605

REACTIONS (2)
  - Dizziness [None]
  - Pruritus [None]

NARRATIVE: CASE EVENT DATE: 20150530
